FAERS Safety Report 11619532 (Version 2)
Quarter: 2016Q2

REPORT INFORMATION
  Report Type: Spontaneous
  Country: US (occurrence: US)
  Receive Date: 20151012
  Receipt Date: 20160627
  Transmission Date: 20160815
  Serious: Yes (Hospitalization, Other)
  Sender: FDA-Public Use
  Company Number: US-GLAXOSMITHKLINE-US2015GSK143082

PATIENT
  Age: 69 Year
  Sex: Female
  Weight: 106 kg

DRUGS (19)
  1. COREG [Suspect]
     Active Substance: CARVEDILOL
     Indication: CARDIAC FAILURE CONGESTIVE
     Dosage: 3.125 MG, BID
     Route: 048
     Dates: end: 20150829
  2. ALLOPURINOL. [Concomitant]
     Active Substance: ALLOPURINOL
  3. FENOFIBRATE. [Concomitant]
     Active Substance: FENOFIBRATE
  4. MAGNESIUM OXIDE. [Concomitant]
     Active Substance: MAGNESIUM OXIDE
  5. LEVEMIR [Concomitant]
     Active Substance: INSULIN DETEMIR
  6. ASPIRIN. [Concomitant]
     Active Substance: ASPIRIN
  7. ATORVASTATIN [Concomitant]
     Active Substance: ATORVASTATIN
  8. NIASPAN [Concomitant]
     Active Substance: NIACIN
  9. NOVOLOG [Concomitant]
     Active Substance: INSULIN ASPART
  10. COREG [Suspect]
     Active Substance: CARVEDILOL
     Indication: CORONARY ARTERY DISEASE
     Dosage: 6.25 MG, BID
     Route: 048
     Dates: start: 20150805
  11. SPIRONOLACTONE. [Suspect]
     Active Substance: SPIRONOLACTONE
     Indication: CARDIAC FAILURE CONGESTIVE
     Dosage: 25 MG, BID
     Route: 048
     Dates: start: 20150720, end: 20150828
  12. FISH OIL [Concomitant]
     Active Substance: FISH OIL
  13. CHOLECALCIFEROL [Concomitant]
     Active Substance: CHOLECALCIFEROL
  14. OXYBUTYNIN [Concomitant]
     Active Substance: OXYBUTYNIN
  15. MUCOMYST [Concomitant]
     Active Substance: ACETYLCYSTEINE
  16. TORSEMIDE. [Suspect]
     Active Substance: TORSEMIDE
     Indication: CARDIAC FAILURE CONGESTIVE
     Dosage: 20 MG, QD
     Route: 048
     Dates: start: 2012, end: 20150828
  17. MULTAQ [Suspect]
     Active Substance: DRONEDARONE
     Indication: ATRIAL FIBRILLATION
     Dosage: 400 MG, BID
     Route: 048
     Dates: start: 20150805, end: 20150829
  18. WARFARIN [Concomitant]
     Active Substance: WARFARIN
  19. ISOSORBIDE MONONITRATE. [Concomitant]
     Active Substance: ISOSORBIDE MONONITRATE

REACTIONS (6)
  - Angina pectoris [Unknown]
  - Condition aggravated [Unknown]
  - Normochromic normocytic anaemia [Unknown]
  - Sinus arrest [Recovered/Resolved]
  - Bradycardia [Recovered/Resolved]
  - Acute kidney injury [Unknown]
